FAERS Safety Report 12099009 (Version 2)
Quarter: 2019Q1

REPORT INFORMATION
  Report Type: Spontaneous
  Country: US (occurrence: US)
  Receive Date: 20160222
  Receipt Date: 20190104
  Transmission Date: 20190417
  Serious: Yes (Hospitalization)
  Sender: FDA-Public Use
  Company Number: US-CIPLA-2016US01362

PATIENT

DRUGS (14)
  1. PRIMIDONE. [Concomitant]
     Active Substance: PRIMIDONE
     Dosage: UNK, RESTARTED
     Route: 065
  2. QUETIAPINE. [Concomitant]
     Active Substance: QUETIAPINE
     Indication: PRODUCT USED FOR UNKNOWN INDICATION
     Dosage: 50 MG, EVERY MORNING
     Route: 065
  3. QUETIAPINE. [Concomitant]
     Active Substance: QUETIAPINE
     Dosage: 150 MG, IN THE EVENING
     Route: 065
  4. PAROXETINE. [Concomitant]
     Active Substance: PAROXETINE
     Dosage: UNK, RESTARTED
     Route: 065
  5. TOPIRAMATE. [Interacting]
     Active Substance: TOPIRAMATE
     Dosage: 100 MG, EVERY EVENING
     Route: 065
  6. PAROXETINE. [Concomitant]
     Active Substance: PAROXETINE
     Indication: PRODUCT USED FOR UNKNOWN INDICATION
     Dosage: 30 MG, DAILY
     Route: 065
  7. GABAPENTIN. [Concomitant]
     Active Substance: GABAPENTIN
     Indication: PRODUCT USED FOR UNKNOWN INDICATION
     Dosage: 300 MG, BID
     Route: 065
  8. QUETIAPINE. [Concomitant]
     Active Substance: QUETIAPINE
     Dosage: 100 MG, EVERY MORNING
     Route: 065
  9. CLONAZEPAM. [Concomitant]
     Active Substance: CLONAZEPAM
     Indication: PRODUCT USED FOR UNKNOWN INDICATION
     Dosage: 1 MG, DAILY
     Route: 065
  10. TOPIRAMATE. [Suspect]
     Active Substance: TOPIRAMATE
     Indication: PRODUCT USED FOR UNKNOWN INDICATION
     Dosage: 50 MG, EVERY MORNING
     Route: 065
  11. DIVALPROEX SODIUM. [Interacting]
     Active Substance: DIVALPROEX SODIUM
     Dosage: 500 MG, BID, RESTARTED
     Route: 065
  12. QUETIAPINE. [Concomitant]
     Active Substance: QUETIAPINE
     Dosage: UNK, RESTARTED
     Route: 065
  13. DIVALPROEX SODIUM. [Interacting]
     Active Substance: DIVALPROEX SODIUM
     Indication: PRODUCT USED FOR UNKNOWN INDICATION
     Dosage: 500 MG, BID
     Route: 065
  14. PRIMIDONE. [Concomitant]
     Active Substance: PRIMIDONE
     Indication: PRODUCT USED FOR UNKNOWN INDICATION
     Dosage: 200 MG, BID
     Route: 065

REACTIONS (2)
  - Hyperammonaemic encephalopathy [Recovered/Resolved]
  - Drug interaction [Unknown]
